FAERS Safety Report 8328278-2 (Version None)
Quarter: 2012Q2

REPORT INFORMATION
  Report Type: 
  Country: None (occurrence: None)
  Receive Date: 20120502
  Receipt Date: 20120426
  Transmission Date: 20120825
  Serious: Yes (Death, Other)
  Sender: FDA-Public Use
  Company Number: JP-ASTELLAS-2012JP003668

PATIENT
  Age: 70 Year
  Sex: Female
  Weight: 49 kg

DRUGS (30)
  1. PREDNISOLONE [Concomitant]
     Dosage: 5 MG, UNKNOWN/D
     Route: 048
     Dates: start: 20110805, end: 20110908
  2. ALLOID G [Concomitant]
     Dosage: 60 MG, UNKNOWN/D
     Route: 048
     Dates: start: 20110823
  3. TACROLIMUS [Suspect]
     Dosage: 3 MG, BID
     Route: 048
     Dates: start: 20110616, end: 20110618
  4. TACROLIMUS [Suspect]
     Dosage: 4 MG, BID
     Route: 048
     Dates: start: 20110620, end: 20110624
  5. TACROLIMUS [Suspect]
     Dosage: 2 MG, BID
     Route: 048
     Dates: start: 20110624, end: 20110704
  6. NERIPROCT [Concomitant]
     Indication: HAEMORRHOIDS
     Dosage: 2 G, UNKNOWN/D
     Route: 061
     Dates: start: 20110714
  7. ACETAMINOPHEN [Concomitant]
     Indication: PYREXIA
     Dosage: 400 MG, UNKNOWN/D
     Route: 048
     Dates: start: 20110810
  8. TACROLIMUS [Suspect]
     Indication: COLITIS ULCERATIVE
     Dosage: 3 MG, BID
     Route: 048
     Dates: start: 20110704, end: 20110817
  9. PREDNISOLONE [Concomitant]
     Dosage: 7 MG, UNKNOWN/D
     Route: 048
     Dates: start: 20110729, end: 20110805
  10. EKSALB [Concomitant]
     Dosage: UNK
     Route: 048
     Dates: start: 20110702
  11. ASACOL [Concomitant]
     Indication: COLITIS ULCERATIVE
     Dosage: 3600 MG, UNKNOWN/D
     Route: 048
  12. PREDNISOLONE [Concomitant]
     Indication: COLITIS ULCERATIVE
     Dosage: 30 MG, UNKNOWN/D
     Route: 048
     Dates: end: 20110527
  13. CATLEP [Concomitant]
     Indication: BACK PAIN
     Dosage: 70 MG, UNKNOWN/D
     Route: 062
     Dates: start: 20110628
  14. PREDNISOLONE [Concomitant]
     Dosage: 20 MG, UNKNOWN/D
     Route: 048
     Dates: start: 20111014
  15. RABEPRAZOLE SODIUM [Concomitant]
     Indication: GASTROOESOPHAGEAL REFLUX DISEASE
     Dosage: 10 MG, UNKNOWN/D
     Route: 048
  16. MIYA BM [Concomitant]
     Indication: COLITIS ULCERATIVE
     Dosage: 3 G, UNKNOWN/D
     Route: 048
     Dates: start: 20110728
  17. PRIMPERAN TAB [Concomitant]
     Indication: NAUSEA
     Dosage: 15 MG, UNKNOWN/D
     Route: 065
     Dates: start: 20110831
  18. TACROLIMUS [Suspect]
     Dosage: 5 MG, BID
     Route: 048
     Dates: start: 20110618, end: 20110620
  19. PENTASA [Concomitant]
     Indication: COLITIS ULCERATIVE
     Dosage: 1000 MG, UNKNOWN/D
     Route: 054
     Dates: start: 20110818, end: 20110908
  20. PREDNISOLONE [Concomitant]
     Dosage: 10 MG, UNKNOWN/D
     Route: 048
     Dates: start: 20110722, end: 20110729
  21. PREDNISOLONE [Concomitant]
     Indication: COLITIS ULCERATIVE
     Dosage: 40 MG, UNKNOWN/D
     Route: 041
     Dates: start: 20110908, end: 20110929
  22. MUCOSTA [Concomitant]
     Dosage: 300 MG, UNKNOWN/D
     Route: 048
  23. TACROLIMUS [Suspect]
     Dosage: 6 MG, BID
     Route: 048
     Dates: start: 20110908, end: 20110915
  24. PREDNISOLONE [Concomitant]
     Dosage: 15 MG, UNKNOWN/D
     Route: 048
     Dates: start: 20110708, end: 20110722
  25. FAMOTIDINE [Concomitant]
     Dosage: 40 MG, UNKNOWN/D
     Route: 048
     Dates: start: 20110721
  26. PREDNISOLONE [Concomitant]
     Dosage: 20 MG, UNKNOWN/D
     Route: 048
     Dates: start: 20110527, end: 20110708
  27. PREDNISOLONE [Concomitant]
     Dosage: 30 MG, UNKNOWN/D
     Route: 041
     Dates: start: 20110929, end: 20111014
  28. VANCOMYCIN HYDROCHLORIDE [Concomitant]
     Dosage: 2 G, UNKNOWN/D
     Route: 048
     Dates: start: 20110608, end: 20110615
  29. CEFAZOLIN SODIUM [Concomitant]
     Indication: COLITIS ULCERATIVE
     Dosage: 3 G, UNKNOWN/D
     Route: 048
  30. ELENTAL [Concomitant]
     Indication: COLITIS ULCERATIVE
     Dosage: UNK
     Route: 048
     Dates: start: 20110805

REACTIONS (3)
  - NON-SMALL CELL LUNG CANCER [None]
  - CYTOMEGALOVIRUS ENTEROCOLITIS [None]
  - GASTROENTERITIS STAPHYLOCOCCAL [None]
